FAERS Safety Report 7587405-5 (Version None)
Quarter: 2011Q3

REPORT INFORMATION
  Report Type: 
  Country: None (occurrence: None)
  Receive Date: 20110704
  Receipt Date: 20110617
  Transmission Date: 20111222
  Serious: Yes (Hospitalization, Other)
  Sender: FDA-Public Use
  Company Number: IN-RANBAXY-2011RR-45659

PATIENT
  Age: 55 Year
  Sex: Female

DRUGS (4)
  1. METOPROLOL TARTRATE [Suspect]
     Indication: INTENTIONAL OVERDOSE
     Dosage: 50 MG, UNK
     Route: 048
  2. METOPROLOL TARTRATE [Suspect]
     Indication: SUICIDE ATTEMPT
  3. VERPAMIL HCL [Suspect]
     Indication: INTENTIONAL OVERDOSE
     Dosage: 40 MG, UNK
     Route: 048
  4. VERPAMIL HCL [Suspect]
     Indication: SUICIDE ATTEMPT

REACTIONS (5)
  - OPTIC ISCHAEMIC NEUROPATHY [None]
  - INTENTIONAL OVERDOSE [None]
  - ATRIOVENTRICULAR BLOCK SECOND DEGREE [None]
  - BRADYCARDIA [None]
  - HYPOTENSION [None]
